FAERS Safety Report 20613490 (Version 2)
Quarter: 2022Q2

REPORT INFORMATION
  Report Type: Report from Study
  Country: CA (occurrence: CA)
  Receive Date: 20220319
  Receipt Date: 20220509
  Transmission Date: 20220720
  Serious: Yes (Hospitalization, Other)
  Sender: FDA-Public Use
  Company Number: CA-ABBVIE-22K-028-4318171-00

PATIENT
  Age: 67 Year
  Sex: Female

DRUGS (2)
  1. SKYRIZI [Suspect]
     Active Substance: RISANKIZUMAB-RZAA
     Indication: Psoriasis
     Route: 058
     Dates: start: 20210127, end: 20210519
  2. COVID-19 VACCINE NOS [Suspect]
     Active Substance: COVID-19 VACCINE NOS
     Indication: COVID-19 prophylaxis
     Route: 030
     Dates: start: 20210516, end: 20210516

REACTIONS (7)
  - Pleural effusion [Unknown]
  - Oedema due to cardiac disease [Unknown]
  - Thrombosis [Not Recovered/Not Resolved]
  - Pneumonia [Unknown]
  - Urticaria [Unknown]
  - General physical health deterioration [Unknown]
  - Goitre [Unknown]

NARRATIVE: CASE EVENT DATE: 20210501
